FAERS Safety Report 9478707 (Version 1)
Quarter: 2013Q3

REPORT INFORMATION
  Report Type: Spontaneous
  Country: PL (occurrence: None)
  Receive Date: 20130822
  Receipt Date: 20130822
  Transmission Date: 20140515
  Serious: Yes (Other)
  Sender: FDA-Public Use
  Company Number: AUR-APL-2013-06016

PATIENT
  Age: 54 Month
  Sex: Male

DRUGS (4)
  1. RAMIPRIL (RAMIPRIL) [Suspect]
     Indication: SCHIMKE IMMUNOOSSEOUS DYSPLASIA
  2. SOLU-MEDROL [Suspect]
     Dosage: 15 MG/KG IN PULSES (15 MG/KG)
  3. CYCLOSPORIN A (CICLOSPORIN) [Suspect]
     Indication: SCHIMKE IMMUNOOSSEOUS DYSPLASIA
  4. XARTAN [Suspect]
     Indication: SCHIMKE IMMUNOOSSEOUS DYSPLASIA

REACTIONS (4)
  - Nephrotic syndrome [None]
  - Focal segmental glomerulosclerosis [None]
  - Drug ineffective [None]
  - Pneumonia [None]
